FAERS Safety Report 22243235 (Version 1)
Quarter: 2023Q2

REPORT INFORMATION
  Report Type: Spontaneous
  Country: BR (occurrence: BR)
  Receive Date: 20230424
  Receipt Date: 20230424
  Transmission Date: 20230722
  Serious: Yes (Hospitalization, Other)
  Sender: FDA-Public Use
  Company Number: BR-SA-SAC20221110000304

PATIENT
  Sex: Female

DRUGS (4)
  1. LANTUS [Suspect]
     Active Substance: INSULIN GLARGINE
     Indication: Diabetes mellitus
     Dosage: UNK UNK, QD
     Dates: start: 1997
  2. LANTUS [Suspect]
     Active Substance: INSULIN GLARGINE
     Dosage: UNK, TID
     Dates: start: 2003
  3. LANTUS SOLOSTAR [Suspect]
     Active Substance: INSULIN GLARGINE
     Indication: Diabetes mellitus
     Dosage: UNK
  4. ALLSTAR [Concomitant]
     Route: 065
     Dates: start: 1997

REACTIONS (7)
  - Diabetic coma [Unknown]
  - Blood glucose abnormal [Unknown]
  - Contusion [Unknown]
  - Injection site haematoma [Unknown]
  - Injection site discolouration [Unknown]
  - Injection site pain [Unknown]
  - Inappropriate schedule of product administration [Unknown]

NARRATIVE: CASE EVENT DATE: 20030101
